FAERS Safety Report 5951440-0 (Version None)
Quarter: 2008Q4

REPORT INFORMATION
  Report Type: 
  Country: None (occurrence: None)
  Receive Date: 20081111
  Receipt Date: 20081111
  Transmission Date: 20090506
  Serious: Yes (Hospitalization)
  Sender: FDA-Public Use
  Company Number: None

PATIENT
  Age: 74 Year
  Sex: Female
  Weight: 63.3 kg

DRUGS (8)
  1. ABILIFY [Suspect]
     Indication: SCHIZOPHRENIA
     Dosage: 30MG PO DAILY  ; 15MG PO DAILY
     Route: 048
     Dates: start: 20070101, end: 20080615
  2. ABILIFY [Suspect]
     Indication: SCHIZOPHRENIA
     Dosage: 30MG PO DAILY  ; 15MG PO DAILY
     Route: 048
     Dates: start: 20080615
  3. DEPAKOTE [Concomitant]
  4. ATENOLOL [Concomitant]
  5. WELCHOL [Concomitant]
  6. PREVACID [Concomitant]
  7. OSCAL [Concomitant]
  8. FEXOFENADINE [Concomitant]

REACTIONS (6)
  - AMMONIA INCREASED [None]
  - ANOREXIA [None]
  - CONFUSIONAL STATE [None]
  - DECREASED ACTIVITY [None]
  - HEPATIC ENZYME ABNORMAL [None]
  - TREMOR [None]
